FAERS Safety Report 6663836-2 (Version None)
Quarter: 2010Q2

REPORT INFORMATION
  Report Type: 
  Country: None (occurrence: None)
  Receive Date: 20100401
  Receipt Date: 20100323
  Transmission Date: 20101027
  Serious: Yes (Life-Threatening, Hospitalization)
  Sender: FDA-Public Use
  Company Number: US-GENZYME-CLOF-1000867

PATIENT
  Sex: Male
  Weight: 37.3 kg

DRUGS (11)
  1. CLOFARABINE [Suspect]
     Indication: ACUTE MYELOID LEUKAEMIA
     Dosage: 50 MG, QDX5
     Route: 042
     Dates: start: 20091204, end: 20091208
  2. CLOFARABINE [Suspect]
     Dosage: UNK UNK, UNK CYCLE 2
     Route: 042
     Dates: start: 20100122
  3. ETOPOSIDE [Suspect]
     Indication: ACUTE MYELOID LEUKAEMIA
     Dosage: 120 MG QDX5
     Route: 042
     Dates: start: 20091204, end: 20091208
  4. ETOPOSIDE [Suspect]
     Dosage: UNK UNK, UNK CYCLE 2
     Route: 042
     Dates: start: 20100101, end: 20100101
  5. CYCLOPHOSPHAMIDE [Suspect]
     Indication: ACUTE MYELOID LEUKAEMIA
     Dosage: 530 MG, QDX5
     Route: 042
     Dates: start: 20091204, end: 20091208
  6. CYCLOPHOSPHAMIDE [Suspect]
     Dosage: UNK UNK, UNK
     Route: 042
     Dates: start: 20100101, end: 20100101
  7. GRANULOCYTE COLONY STIMULATING FACTOR [Concomitant]
     Indication: NEUTROPENIA
     Dosage: 180 MCG, QD
     Route: 058
     Dates: start: 20091209, end: 20100119
  8. FLUCONAZOLE [Concomitant]
     Indication: PROPHYLAXIS
     Dosage: 150 MG, QD
     Route: 048
     Dates: start: 20091129, end: 20100122
  9. BACTRIM [Concomitant]
     Indication: PROPHYLAXIS
     Dosage: 400 UNK, QD
     Route: 048
  10. BACTRIM [Concomitant]
     Dosage: 80 MG, BID, SAT/SUN
     Route: 048
     Dates: start: 20091129
  11. CIPRO [Concomitant]
     Indication: NEUTROPENIA
     Dosage: 500 MG, QD
     Route: 048
     Dates: start: 20091222, end: 20100105

REACTIONS (7)
  - FEBRILE NEUTROPENIA [None]
  - HAEMOGLOBIN DECREASED [None]
  - HYPOTENSION [None]
  - HYPOXIA [None]
  - STREPTOCOCCAL BACTERAEMIA [None]
  - SYNCOPE [None]
  - THROMBOCYTOPENIA [None]
